FAERS Safety Report 4705528-2 (Version None)
Quarter: 2005Q2

REPORT INFORMATION
  Report Type: 
  Country: None (occurrence: None)
  Receive Date: 20050208
  Receipt Date: 20050208
  Transmission Date: 20051028
  Serious: No
  Sender: FDA-Public Use
  Company Number: None

PATIENT
  Sex: Female
  Weight: 71.2147 kg

DRUGS (1)
  1. VERAPAMIL [Suspect]
     Dosage: 240 MG 1 PO QD
     Route: 048

REACTIONS (4)
  - CONSTIPATION [None]
  - DIZZINESS [None]
  - NAUSEA [None]
  - VOMITING [None]
